FAERS Safety Report 8074880-5 (Version None)
Quarter: 2012Q1

REPORT INFORMATION
  Report Type: 
  Country: None (occurrence: None)
  Receive Date: 20120126
  Receipt Date: 20120117
  Transmission Date: 20120608
  Serious: Yes (Other)
  Sender: FDA-Public Use
  Company Number: US-ASTRAZENECA-2012SE03604

PATIENT
  Age: 47 Year
  Sex: Male

DRUGS (3)
  1. PRILOSEC [Suspect]
     Route: 048
  2. NEURONTIN [Concomitant]
  3. NEXIUM [Concomitant]
     Route: 048

REACTIONS (1)
  - CONVULSION [None]
